FAERS Safety Report 9062013 (Version 1)
Quarter: 2013Q1

REPORT INFORMATION
  Report Type: Spontaneous
  Country: EC (occurrence: None)
  Receive Date: 20130122
  Receipt Date: 20130122
  Transmission Date: 20140127
  Serious: Yes (Other)
  Sender: FDA-Public Use
  Company Number: ENTC2013-0021

PATIENT
  Age: 56 Year
  Sex: Female

DRUGS (1)
  1. STALEVO [Suspect]
     Indication: PARKINSON^S DISEASE
     Dosage: 100/25/200 MG, STRENGTH ; 100/25/200
     Route: 048
     Dates: start: 2011

REACTIONS (2)
  - Fall [None]
  - Hand fracture [None]
